FAERS Safety Report 7989469-3 (Version None)
Quarter: 2011Q4

REPORT INFORMATION
  Report Type: 
  Country: None (occurrence: None)
  Receive Date: 20111219
  Receipt Date: 20111212
  Transmission Date: 20120403
  Serious: Yes (Other)
  Sender: FDA-Public Use
  Company Number: ES-ASTELLAS-2011EU009150

PATIENT
  Age: 71 Year
  Sex: Male

DRUGS (5)
  1. CIPROFLOXACIN [Concomitant]
     Dosage: UNK
     Route: 065
  2. VESICARE [Suspect]
     Dosage: 10 MG, UNKNOWN/D
     Route: 048
     Dates: start: 20110929, end: 20111008
  3. AZOPT [Concomitant]
     Dosage: 5 ML, UNKNOWN/D
     Route: 065
  4. COZAAR [Concomitant]
     Dosage: UNK
     Route: 065
  5. BIMATOPROST AND TIMOLOL MALEATE [Concomitant]
     Dosage: UNK
     Route: 065

REACTIONS (2)
  - MELAENA [None]
  - ABDOMINAL PAIN [None]
